APPROVED DRUG PRODUCT: LOSARTAN POTASSIUM
Active Ingredient: LOSARTAN POTASSIUM
Strength: 100MG
Dosage Form/Route: TABLET;ORAL
Application: A204795 | Product #003
Applicant: HISUN PHARMACEUTICAL HANGZHOU CO LTD
Approved: Apr 4, 2019 | RLD: No | RS: No | Type: DISCN